FAERS Safety Report 6336187-3 (Version None)
Quarter: 2009Q3

REPORT INFORMATION
  Report Type: 
  Country: None (occurrence: None)
  Receive Date: 20090828
  Receipt Date: 20090814
  Transmission Date: 20100115
  Serious: Yes (Life-Threatening, Hospitalization)
  Sender: FDA-Public Use
  Company Number: IDA-00247

PATIENT
  Age: 50 Year
  Sex: Female

DRUGS (2)
  1. PROPRANOLOL [Suspect]
     Dosage: 5.2 G ONCE  ORAL
     Route: 048
  2. BENZODIAZEPINE DERIVATIVES /OLD CODE (BENZODIAZEPINE DERIVATIVES /OLD [Concomitant]

REACTIONS (7)
  - CARDIAC ARREST [None]
  - GENERAL PHYSICAL HEALTH DETERIORATION [None]
  - LOSS OF CONSCIOUSNESS [None]
  - OVERDOSE [None]
  - PULSE ABSENT [None]
  - RESPIRATORY FAILURE [None]
  - SINUS BRADYCARDIA [None]
